FAERS Safety Report 4436165-5 (Version None)
Quarter: 2004Q3

REPORT INFORMATION
  Report Type: 
  Country: None (occurrence: None)
  Receive Date: 20040830
  Receipt Date: 20040422
  Transmission Date: 20050211
  Serious: No
  Sender: FDA-Public Use
  Company Number: US-BRISTOL-MYERS SQUIBB COMPANY-12568283

PATIENT
  Age: 77 Year
  Sex: Female
  Weight: 61 kg

DRUGS (6)
  1. ERBITUX [Suspect]
     Indication: COLON CANCER
     Dosage: INFUSION STOPPED, THEN RESTARTED AT SLOWER RATE AND COMPLETED
     Route: 042
     Dates: start: 20040422, end: 20040422
  2. IRINOTECAN [Concomitant]
     Route: 042
  3. TYLENOL [Concomitant]
     Route: 048
  4. BENADRYL [Concomitant]
     Route: 042
  5. DECADRON [Concomitant]
     Route: 042
  6. ZOFRAN [Concomitant]
     Route: 042

REACTIONS (5)
  - ERYTHEMA [None]
  - MEDICATION ERROR [None]
  - OVERDOSE [None]
  - RASH ERYTHEMATOUS [None]
  - RASH PRURITIC [None]
